FAERS Safety Report 6429146-3 (Version None)
Quarter: 2009Q4

REPORT INFORMATION
  Report Type: 
  Country: None (occurrence: None)
  Receive Date: 20091030
  Receipt Date: 20091016
  Transmission Date: 20100525
  Serious: Yes (Death, Hospitalization)
  Sender: FDA-Public Use
  Company Number: 2009AC000246

PATIENT
  Age: 62 Year
  Sex: Male

DRUGS (1)
  1. DIGOXIN [Suspect]
     Indication: ATRIAL FIBRILLATION
     Dosage: 0.25 MG;QD;PO
     Route: 048

REACTIONS (16)
  - ANHEDONIA [None]
  - ANOXIC ENCEPHALOPATHY [None]
  - ANXIETY [None]
  - CARDIO-RESPIRATORY ARREST [None]
  - CORONARY ARTERY OCCLUSION [None]
  - COUGH [None]
  - ECONOMIC PROBLEM [None]
  - FALL [None]
  - FATIGUE [None]
  - HYPERCHOLESTEROLAEMIA [None]
  - MULTIPLE INJURIES [None]
  - PAIN [None]
  - RESPIRATORY FAILURE [None]
  - THERAPEUTIC AGENT TOXICITY [None]
  - VENTRICULAR FIBRILLATION [None]
  - VENTRICULAR TACHYCARDIA [None]
